FAERS Safety Report 22219371 (Version 1)
Quarter: 2023Q2

REPORT INFORMATION
  Report Type: Spontaneous
  Country: US (occurrence: None)
  Receive Date: 20230416
  Receipt Date: 20230416
  Transmission Date: 20230721
  Serious: Yes (Other)
  Sender: FDA-Public Use
  Company Number: None

PATIENT
  Age: 56 Year
  Sex: Female
  Weight: 92.25 kg

DRUGS (18)
  1. NALTREXONE [Suspect]
     Active Substance: NALTREXONE
     Indication: Fibromyalgia
     Dosage: OTHER QUANTITY : 1 CAPSULE(S);?FREQUENCY : AT BEDTIME;?
     Route: 048
  2. OXY [Concomitant]
  3. TIZANIDINE [Concomitant]
     Active Substance: TIZANIDINE
  4. PERCOCET [Concomitant]
     Active Substance: ACETAMINOPHEN\OXYCODONE HYDROCHLORIDE
  5. XANAX [Concomitant]
     Active Substance: ALPRAZOLAM
  6. LEVOTHYROXINE SOD [Concomitant]
  7. ESTRADIOL [Concomitant]
     Active Substance: ESTRADIOL
  8. LOSARTAN [Concomitant]
     Active Substance: LOSARTAN
  9. AMLODIPINE BESYLATE [Concomitant]
     Active Substance: AMLODIPINE BESYLATE
  10. VITAMIN D3 [Concomitant]
     Active Substance: CHOLECALCIFEROL
  11. SUPERFOOD MULTI [Concomitant]
  12. COENZYME Q10 [Concomitant]
     Active Substance: DIETARY SUPPLEMENT\UBIDECARENONE
  13. MEG RED KRILL OIL [Concomitant]
  14. PRE RELIEF [Concomitant]
  15. DMMANOSE [Concomitant]
  16. TUMMERIC [Concomitant]
  17. GUT HEALTH BIOCOMPLETE AND MCT WELLNESS [Concomitant]
  18. TRIFLUOPERAZINE HYDROCHLORIDE [Concomitant]
     Active Substance: TRIFLUOPERAZINE HYDROCHLORIDE

REACTIONS (6)
  - Vomiting [None]
  - Diarrhoea [None]
  - Pain [None]
  - Flank pain [None]
  - Renal pain [None]
  - Decreased appetite [None]

NARRATIVE: CASE EVENT DATE: 20230413
